FAERS Safety Report 8812588 (Version 2)
Quarter: 2012Q4

REPORT INFORMATION
  Report Type: 
  Country: US (occurrence: US)
  Receive Date: 20120927
  Receipt Date: 20121102
  Transmission Date: 20130627
  Serious: No
  Sender: FDA-Public Use
  Company Number: US-ASTRAZENECA-2012SE71835

PATIENT
  Age: 79 Year
  Sex: Female
  Weight: 57.6 kg

DRUGS (9)
  1. SYMBICORT PMDI [Suspect]
     Indication: ASTHMA
     Dosage: 160/4.5  MCG,  2 SPRAYS BID
     Route: 055
  2. SYMBICORT PMDI [Suspect]
     Indication: ASTHMA
     Dosage: 80/4.5  MCG,  2 SPRAYS BID
     Route: 055
  3. SIMVASTATIN [Suspect]
     Indication: BLOOD CHOLESTEROL INCREASED
     Route: 048
     Dates: start: 2011
  4. SIMVASTATIN [Suspect]
     Indication: BLOOD CHOLESTEROL INCREASED
     Route: 048
  5. LOSARTAN POTASSIUM [Concomitant]
     Indication: BLOOD PRESSURE INCREASED
  6. CLONIDINE HCL [Concomitant]
     Indication: BLOOD PRESSURE
  7. AMLODIPINE [Concomitant]
     Indication: HYPERTENSION
  8. SPIRONOLACTONE [Concomitant]
     Indication: HYPERTENSION
  9. XOEPENEX [Concomitant]
     Indication: PROPHYLAXIS AGAINST BRONCHOSPASM

REACTIONS (4)
  - Blood cholesterol increased [Unknown]
  - Pain in extremity [Unknown]
  - Drug dose omission [Unknown]
  - Circumstance or information capable of leading to medication error [Unknown]
